FAERS Safety Report 6536856-6 (Version None)
Quarter: 2010Q1

REPORT INFORMATION
  Report Type: 
  Country: None (occurrence: None)
  Receive Date: 20100113
  Receipt Date: 20090907
  Transmission Date: 20100710
  Serious: Yes (Hospitalization)
  Sender: FDA-Public Use
  Company Number: FR-PFIZER INC-2009226214

PATIENT
  Age: 68 Year
  Sex: Male

DRUGS (6)
  1. SUTENT [Suspect]
     Indication: TRANSITIONAL CELL CARCINOMA
     Dosage: 50 MG, UNK
     Route: 048
     Dates: start: 20090523, end: 20090608
  2. SEVREDOL [Concomitant]
  3. DURAGESIC-100 [Concomitant]
  4. GLUCOPHAGE [Concomitant]
     Dosage: 2 DF, 2X/DAY (IN THE MORNING AND IN THE EVENING)
  5. TRANSIPEG [Concomitant]
  6. DOLIPRANE [Concomitant]
     Dosage: 2 DF, 4X/DAY

REACTIONS (4)
  - DISEASE PROGRESSION [None]
  - DYSURIA [None]
  - HAEMATURIA [None]
  - TRANSITIONAL CELL CARCINOMA [None]
